FAERS Safety Report 5873571-6 (Version None)
Quarter: 2008Q3

REPORT INFORMATION
  Report Type: 
  Country: None (occurrence: None)
  Receive Date: 20080908
  Receipt Date: 20080618
  Transmission Date: 20090109
  Serious: No
  Sender: FDA-Public Use
  Company Number: US-BAYER-200812792BCC

PATIENT
  Age: 48 Year
  Sex: Female
  Weight: 59 kg

DRUGS (1)
  1. ALEVE COLD AND SINUS [Suspect]
     Indication: SINUS HEADACHE
     Route: 048
     Dates: start: 20080616, end: 20080617

REACTIONS (4)
  - DISTURBANCE IN ATTENTION [None]
  - FEELING ABNORMAL [None]
  - NERVOUSNESS [None]
  - UNEVALUABLE EVENT [None]
